FAERS Safety Report 6738421-4 (Version None)
Quarter: 2010Q2

REPORT INFORMATION
  Report Type: 
  Country: None (occurrence: None)
  Receive Date: 20100520
  Receipt Date: 20100505
  Transmission Date: 20101027
  Serious: Yes (Life-Threatening, Hospitalization, Other)
  Sender: FDA-Public Use
  Company Number: 2010SCPR000682

PATIENT
  Age: 19 Year
  Sex: Male

DRUGS (1)
  1. IBUPROFEN (IBUPROFEN) TABLET, 200MG [Suspect]
     Indication: DRUG USE FOR UNKNOWN INDICATION
     Dosage: 90000 MG, ORAL
     Route: 048

REACTIONS (22)
  - AGITATION [None]
  - ALCOHOL USE [None]
  - AREFLEXIA [None]
  - BLOOD PRESSURE ABNORMAL [None]
  - BLOOD SODIUM INCREASED [None]
  - COMA [None]
  - DEPRESSED LEVEL OF CONSCIOUSNESS [None]
  - DRUG TOXICITY [None]
  - ELECTROCARDIOGRAM QT PROLONGED [None]
  - FEELING GUILTY [None]
  - GASTRIC HAEMORRHAGE [None]
  - HYPOTHERMIA [None]
  - INTENTIONAL OVERDOSE [None]
  - METABOLIC ACIDOSIS [None]
  - MUSCLE CONTRACTIONS INVOLUNTARY [None]
  - MUSCLE TWITCHING [None]
  - OCCULT BLOOD POSITIVE [None]
  - OLIGURIA [None]
  - POLYURIA [None]
  - RED BLOOD CELLS URINE POSITIVE [None]
  - RENAL TUBULAR NECROSIS [None]
  - SINUS TACHYCARDIA [None]
